FAERS Safety Report 23135608 (Version 3)
Quarter: 2024Q1

REPORT INFORMATION
  Report Type: Spontaneous
  Country: US (occurrence: US)
  Receive Date: 20231101
  Receipt Date: 20240202
  Transmission Date: 20240410
  Serious: Yes (Hospitalization, Other)
  Sender: FDA-Public Use
  Company Number: US-PFIZER INC-202300335005

PATIENT
  Age: 70 Year
  Sex: Female
  Weight: 63.5 kg

DRUGS (2)
  1. XELJANZ [Suspect]
     Active Substance: TOFACITINIB CITRATE
     Indication: Rheumatoid arthritis
     Dosage: FOR FREQUENCY, CONSUMER STATED: THOUGHT IT IS ONCE
     Route: 048
     Dates: start: 20230315
  2. XELJANZ [Suspect]
     Active Substance: TOFACITINIB CITRATE
     Indication: Arthritis
     Dosage: 10 MG, 2X/DAY
     Dates: start: 202307

REACTIONS (6)
  - Cervical vertebral fracture [Not Recovered/Not Resolved]
  - Fall [Not Recovered/Not Resolved]
  - Neck injury [Not Recovered/Not Resolved]
  - Flatulence [Recovered/Resolved]
  - Head injury [Not Recovered/Not Resolved]
  - Off label use [Recovered/Resolved]

NARRATIVE: CASE EVENT DATE: 20230701
